FAERS Safety Report 12389633 (Version 2)
Quarter: 2016Q2

REPORT INFORMATION
  Report Type: Report from Study
  Country: DE (occurrence: DE)
  Receive Date: 20160520
  Receipt Date: 20160610
  Transmission Date: 20160815
  Serious: Yes (Hospitalization)
  Sender: FDA-Public Use
  Company Number: DE-SA-2016SA095842

PATIENT
  Age: 37 Year
  Sex: Male

DRUGS (8)
  1. DEKRISTOL [Concomitant]
     Active Substance: CHOLECALCIFEROL
     Indication: VITAMIN D DEFICIENCY
     Dosage: DOSE: 20,000
     Route: 048
     Dates: start: 20151113
  2. LEMTRADA [Suspect]
     Active Substance: ALEMTUZUMAB
     Indication: MULTIPLE SCLEROSIS
     Route: 041
     Dates: start: 20150126, end: 20150130
  3. CITALOPRAM [Concomitant]
     Active Substance: CITALOPRAM HYDROBROMIDE
     Indication: DEPRESSION
     Dosage: DOSE: 20
     Route: 048
     Dates: start: 20050329
  4. ZOPICLONE [Concomitant]
     Active Substance: ZOPICLONE
     Indication: SLEEP DISORDER
     Dosage: DOSE: 7.5
     Route: 048
     Dates: start: 20150126
  5. MCP [Concomitant]
     Active Substance: METOCLOPRAMIDE HYDROCHLORIDE
     Indication: ABDOMINAL PAIN UPPER
     Route: 048
     Dates: start: 20150326
  6. MCP [Concomitant]
     Active Substance: METOCLOPRAMIDE HYDROCHLORIDE
     Indication: NAUSEA
     Route: 048
     Dates: start: 20150326
  7. ERGENYL [Concomitant]
     Active Substance: VALPROIC ACID
     Indication: EPILEPSY
     Dosage: DOSE: 500 RET
     Route: 048
     Dates: start: 20140924
  8. LEMTRADA [Suspect]
     Active Substance: ALEMTUZUMAB
     Indication: MULTIPLE SCLEROSIS
     Route: 042
     Dates: start: 20160107

REACTIONS (2)
  - Bronchitis [Recovered/Resolved]
  - Mycobacterium tuberculosis complex test positive [Unknown]

NARRATIVE: CASE EVENT DATE: 20151229
